FAERS Safety Report 5329070-3 (Version None)
Quarter: 2007Q2

REPORT INFORMATION
  Report Type: 
  Country: None (occurrence: None)
  Receive Date: 20070518
  Receipt Date: 20070508
  Transmission Date: 20071010
  Serious: Yes (Hospitalization, Other)
  Sender: FDA-Public Use
  Company Number: US-PFIZER INC-2006124683

PATIENT
  Sex: Male

DRUGS (2)
  1. CELEBREX [Suspect]
     Indication: PAIN MANAGEMENT
     Route: 048
     Dates: start: 20020809, end: 20021013
  2. VIOXX [Suspect]
     Route: 048
     Dates: start: 20031030, end: 20040822

REACTIONS (3)
  - DEPRESSION [None]
  - INSOMNIA [None]
  - ISCHAEMIC STROKE [None]
